FAERS Safety Report 20291045 (Version 1)
Quarter: 2022Q1

REPORT INFORMATION
  Report Type: Spontaneous
  Country: DE (occurrence: DE)
  Receive Date: 20220104
  Receipt Date: 20220104
  Transmission Date: 20220424
  Serious: Yes (Other)
  Sender: FDA-Public Use
  Company Number: DE-SANOFI-00913509

PATIENT

DRUGS (1)
  1. DUPIXENT [Suspect]
     Active Substance: DUPILUMAB

REACTIONS (2)
  - Osteonecrosis [Unknown]
  - Musculoskeletal discomfort [Unknown]
